FAERS Safety Report 7216431-0 (Version None)
Quarter: 2011Q1

REPORT INFORMATION
  Report Type: 
  Country: None (occurrence: None)
  Receive Date: 20110107
  Receipt Date: 20110105
  Transmission Date: 20110831
  Serious: Yes (Hospitalization)
  Sender: FDA-Public Use
  Company Number: JP-ABBOTT-03P-087-0223875-00

PATIENT
  Sex: Male

DRUGS (18)
  1. TENOFOVIR DISOPROXIL FUMARATE [Suspect]
     Indication: HIV INFECTION
     Route: 048
     Dates: start: 20021125
  2. CLONAZEPAM [Concomitant]
     Indication: EPILEPSY
     Route: 048
     Dates: start: 20021202, end: 20031020
  3. CLONAZEPAM [Concomitant]
     Route: 048
     Dates: start: 20031021, end: 20080804
  4. KALETRA [Suspect]
     Indication: HIV INFECTION
     Route: 048
     Dates: start: 20021124, end: 20061023
  5. CARBAMAZEPINE [Concomitant]
     Indication: EPILEPSY
     Route: 048
     Dates: start: 20020401, end: 20021115
  6. KALETRA [Suspect]
     Indication: HIV INFECTION
     Route: 048
     Dates: start: 20061024, end: 20081027
  7. RITONAVIR [Suspect]
     Indication: HIV INFECTION
     Dosage: DAILY
     Route: 048
     Dates: start: 20081028
  8. EFAVIRENZ [Suspect]
     Indication: HIV INFECTION
     Route: 048
     Dates: start: 20020401, end: 20021123
  9. LAMIVUDINE [Suspect]
     Indication: HIV INFECTION
     Route: 048
     Dates: start: 20020401, end: 20021123
  10. STAVUDINE [Suspect]
     Indication: HIV INFECTION
     Route: 048
     Dates: start: 20020401, end: 20021123
  11. PRIMIDONE [Concomitant]
     Indication: EPILEPSY
     Route: 048
     Dates: start: 20020401, end: 20060613
  12. CLONAZEPAM [Concomitant]
     Route: 048
     Dates: start: 20080805
  13. BETAHISTINE MESILATE [Concomitant]
     Indication: EPILEPSY
     Route: 048
     Dates: start: 20081006
  14. BIFIDOBACTERIUM [Concomitant]
     Indication: DIARRHOEA
     Route: 048
     Dates: start: 20021205, end: 20070101
  15. CLONAZEPAM [Concomitant]
     Indication: CEREBRAL INFARCTION
     Route: 048
     Dates: start: 20020401, end: 20021201
  16. DARUNAVIR [Suspect]
     Indication: HIV INFECTION
     Route: 048
     Dates: start: 20081028
  17. ASPIRIN [Concomitant]
     Indication: CEREBRAL INFARCTION
     Route: 048
     Dates: start: 20020401
  18. CLOMIPRAMINE HYDROCHLORIDE [Concomitant]
     Indication: CEREBRAL INFARCTION
     Route: 048
     Dates: start: 20030204, end: 20061031

REACTIONS (4)
  - HYPERLIPIDAEMIA [None]
  - INSOMNIA [None]
  - EPILEPSY [None]
  - DIARRHOEA [None]
